FAERS Safety Report 19479446 (Version 1)
Quarter: 2021Q2

REPORT INFORMATION
  Report Type: Spontaneous
  Country: US (occurrence: US)
  Receive Date: 20210630
  Receipt Date: 20210630
  Transmission Date: 20210717
  Serious: Yes (Hospitalization)
  Sender: FDA-Public Use
  Company Number: US-HLS-202004126

PATIENT
  Age: 22 Year
  Sex: Male

DRUGS (2)
  1. CLOZAPINE. [Suspect]
     Active Substance: CLOZAPINE
     Indication: SCHIZOPHRENIA
     Dosage: 100 MG IN THE MORNING AND 200 MG IN THE EVENING
     Route: 065
  2. CLOZAPINE. [Suspect]
     Active Substance: CLOZAPINE
     Indication: SCHIZOPHRENIA
     Dosage: RE?CHALLENGE : SLOWER TITRATION WITH INITIAL DOSE 12.5MG, FOLLOWED BY INCREASES OF 25 MG PER 48 HOUR
     Route: 065

REACTIONS (17)
  - C-reactive protein increased [Recovered/Resolved]
  - Pyrexia [Recovered/Resolved]
  - Asthenia [Recovered/Resolved]
  - Brain natriuretic peptide increased [Recovered/Resolved]
  - Transaminases increased [Recovered/Resolved]
  - Cardiac failure [Recovered/Resolved]
  - Sinus tachycardia [Recovered/Resolved]
  - Chest pain [Recovered/Resolved]
  - Red blood cell sedimentation rate [Recovered/Resolved]
  - Diarrhoea [Recovered/Resolved]
  - Myocarditis [Recovered/Resolved]
  - Electrocardiogram QT prolonged [Recovered/Resolved]
  - Psychotic disorder [Recovered/Resolved]
  - Influenza like illness [Recovered/Resolved]
  - Hallucination [Recovered/Resolved]
  - Hepatitis A virus test positive [Recovered/Resolved]
  - Troponin I increased [Recovered/Resolved]
